FAERS Safety Report 10423152 (Version 1)
Quarter: 2014Q3

REPORT INFORMATION
  Report Type: Spontaneous
  Country: US (occurrence: None)
  Receive Date: 20140722
  Receipt Date: 20140722
  Transmission Date: 20150326
  Serious: No
  Sender: FDA-Public Use
  Company Number: AEGR000424

PATIENT
  Age: 57 Year
  Sex: Male
  Weight: 81.5 kg

DRUGS (2)
  1. JUXTAPID [Suspect]
     Active Substance: LOMITAPIDE MESYLATE
     Indication: TYPE IIA HYPERLIPIDAEMIA
     Route: 048
     Dates: start: 20140410
  2. WELCHOL (COLESEVEELAM HYDROCHLORIDE) [Concomitant]

REACTIONS (4)
  - Headache [None]
  - Diarrhoea [None]
  - Weight decreased [None]
  - Asthenia [None]

NARRATIVE: CASE EVENT DATE: 20140407
